FAERS Safety Report 17515699 (Version 2)
Quarter: 2020Q1

REPORT INFORMATION
  Report Type: Spontaneous
  Country: US (occurrence: US)
  Receive Date: 20200309
  Receipt Date: 20200310
  Transmission Date: 20200409
  Serious: No
  Sender: FDA-Public Use
  Company Number: US-JNJFOC-20200244259

PATIENT
  Sex: Female
  Weight: 67.19 kg

DRUGS (1)
  1. NIZORAL [Suspect]
     Active Substance: KETOCONAZOLE
     Indication: TINEA VERSICOLOUR
     Route: 062

REACTIONS (3)
  - Skin discolouration [Unknown]
  - Eye irritation [Unknown]
  - Product odour abnormal [Unknown]
